FAERS Safety Report 16061779 (Version 6)
Quarter: 2019Q3

REPORT INFORMATION
  Report Type: Spontaneous
  Country: US (occurrence: US)
  Receive Date: 20190312
  Receipt Date: 20190808
  Transmission Date: 20191004
  Serious: No
  Sender: FDA-Public Use
  Company Number: US-PFIZER INC-2019103775

PATIENT
  Age: 66 Year
  Sex: Female
  Weight: 124.7 kg

DRUGS (4)
  1. LYRICA [Suspect]
     Active Substance: PREGABALIN
     Dosage: 75 MG, 3X/DAY
  2. LYRICA [Suspect]
     Active Substance: PREGABALIN
     Dosage: 100 MG, UNK
  3. LYRICA [Suspect]
     Active Substance: PREGABALIN
     Dosage: 75 MG, 2X/DAY
  4. LYRICA [Suspect]
     Active Substance: PREGABALIN
     Indication: NEUROPATHY PERIPHERAL
     Dosage: 75 MG, 1X/DAY
     Route: 048

REACTIONS (18)
  - Drug ineffective [Unknown]
  - Diplopia [Unknown]
  - Withdrawal syndrome [Unknown]
  - Impaired driving ability [Unknown]
  - Gait disturbance [Unknown]
  - Dry mouth [Unknown]
  - Fall [Unknown]
  - Peripheral swelling [Unknown]
  - Pyrexia [Unknown]
  - Gout [Unknown]
  - Pain in extremity [Unknown]
  - Dizziness [Unknown]
  - Hypoaesthesia [Unknown]
  - Chills [Unknown]
  - Tongue ulceration [Unknown]
  - Joint swelling [Unknown]
  - Limb injury [Unknown]
  - Joint injury [Unknown]
